FAERS Safety Report 12115024 (Version 1)
Quarter: 2016Q1

REPORT INFORMATION
  Report Type: Report from Study
  Country: KR (occurrence: KR)
  Receive Date: 20160225
  Receipt Date: 20160225
  Transmission Date: 20160526
  Serious: Yes (Death, Other)
  Sender: FDA-Public Use
  Company Number: PHHY2015KR174440

PATIENT
  Age: 75 Year
  Sex: Female
  Weight: 34.5 kg

DRUGS (19)
  1. NORMAL SALINE [Concomitant]
     Active Substance: SODIUM CHLORIDE
     Dosage: 1000 MG, QD (IV LINE DRIP)
     Route: 042
     Dates: start: 20121106, end: 20121120
  2. K CONTIN [Concomitant]
     Indication: MALNUTRITION
     Dosage: 2 DF, TID
     Route: 048
     Dates: start: 20121112, end: 20121112
  3. NORMAL SALINE [Concomitant]
     Active Substance: SODIUM CHLORIDE
     Indication: IRRIGATION THERAPY
     Dosage: 1 L, QD (FOR IRRIGATION)
     Route: 065
     Dates: start: 20121106, end: 20121106
  4. AMBROXOL HCL [Concomitant]
     Active Substance: AMBROXOL HYDROCHLORIDE
     Indication: PNEUMONIA
     Dosage: 1 DF, QD
     Route: 042
     Dates: start: 20121109, end: 20121120
  5. APETROL                            /00284501/ [Concomitant]
     Indication: MALNUTRITION
     Dosage: 1 DF, QD
     Route: 048
     Dates: start: 20121107, end: 20121117
  6. TANTUM [Concomitant]
     Active Substance: BENZYDAMINE HYDROCHLORIDE
     Indication: THERAPEUTIC GARGLE
     Dosage: 1 DF, QD
     Route: 048
     Dates: start: 20121109, end: 20121116
  7. AMARYL [Concomitant]
     Active Substance: GLIMEPIRIDE
     Indication: DIABETES MELLITUS
     Dosage: 1 DF, QD
     Route: 048
     Dates: start: 20121111, end: 20121116
  8. SMOFKABIVEN [Concomitant]
     Active Substance: UNSPECIFIED INGREDIENT
     Indication: MALNUTRITION
     Dosage: 1 DF, QD
     Route: 042
     Dates: start: 20121117, end: 20121120
  9. NACL [Concomitant]
     Active Substance: SODIUM CHLORIDE
     Indication: PRODUCT USED FOR UNKNOWN INDICATION
     Dosage: 1 DF, QD (0.9 % CONCENTRATION)
     Route: 042
     Dates: start: 20121120
  10. ALBUMIN [Concomitant]
     Active Substance: ALBUMIN (HUMAN)
     Indication: MALNUTRITION
     Dosage: 100 ML, QD
     Route: 042
     Dates: start: 20121112, end: 20121112
  11. BASEN [Concomitant]
     Active Substance: VOGLIBOSE
     Indication: DIABETES MELLITUS
     Dosage: 1 DF, QD
     Route: 048
     Dates: start: 20121111, end: 20121116
  12. DEXTROSE. [Concomitant]
     Active Substance: DEXTROSE
     Dosage: 1000 ML, QD (10% CONCENTRATION)
     Route: 042
     Dates: start: 20121115
  13. VOTRIENT [Suspect]
     Active Substance: PAZOPANIB HYDROCHLORIDE
     Indication: RENAL CELL CARCINOMA
     Dosage: 800 MG, QD
     Route: 048
     Dates: start: 20120522, end: 20121119
  14. DEXTROSE. [Concomitant]
     Active Substance: DEXTROSE
     Indication: PRODUCT USED FOR UNKNOWN INDICATION
     Dosage: 500 ML, QD (5% CONC) MIX WITH SOMATOSTATIN
     Route: 042
     Dates: start: 20121106, end: 20121106
  15. DEXTROSE. [Concomitant]
     Active Substance: DEXTROSE
     Dosage: 100 ML, QD (5% CONC) IV LINE DRIP
     Route: 042
     Dates: start: 20121107, end: 20121107
  16. DEXTROSE. [Concomitant]
     Active Substance: DEXTROSE
     Dosage: 300 ML, QD (20% CONCENTRATION)
     Route: 042
     Dates: start: 20121121
  17. LIDOCAINE VISCOUS [Concomitant]
     Active Substance: LIDOCAINE HYDROCHLORIDE
     Indication: THERAPEUTIC GARGLE
     Dosage: 40 ML, PRN
     Route: 048
     Dates: start: 20121106, end: 20121116
  18. PANTOLOC//PANTOPRAZOLE SODIUM SESQUIHYDRATE [Concomitant]
     Active Substance: PANTOPRAZOLE SODIUM
     Indication: OESOPHAGEAL ULCER
     Dosage: 40 MG, (3 VIAL) QD
     Route: 042
     Dates: start: 20121106, end: 20121107
  19. SMOFLIPID [Concomitant]
     Active Substance: FISH OIL\OLIVEOIL\SOYBEAN OIL\TRIGLYCERIDES,UNSPECIFIED LENGTH
     Indication: MALNUTRITION
     Dosage: 500 ML, ONCE/SINGLE (20% CONCENTRATION)
     Route: 042
     Dates: start: 20121111, end: 20121111

REACTIONS (8)
  - Dyspnoea [Fatal]
  - Metastases to central nervous system [Unknown]
  - Syncope [Fatal]
  - Nervous system disorder [Unknown]
  - Cerebral haemorrhage [Unknown]
  - Brain oedema [Unknown]
  - Cerebral atrophy [Unknown]
  - Partial seizures [Unknown]

NARRATIVE: CASE EVENT DATE: 20121106
